FAERS Safety Report 8395704-2 (Version None)
Quarter: 2012Q2

REPORT INFORMATION
  Report Type: 
  Country: None (occurrence: None)
  Receive Date: 20120530
  Receipt Date: 20120327
  Transmission Date: 20120825
  Serious: No
  Sender: FDA-Public Use
  Company Number: US-GLAXOSMITHKLINE-A0971360A

PATIENT
  Age: 55 Year
  Sex: Female

DRUGS (6)
  1. VENTOLIN [Suspect]
     Indication: CHRONIC OBSTRUCTIVE PULMONARY DISEASE
     Dosage: 2PUFF AS REQUIRED
     Route: 055
     Dates: start: 20120309, end: 20120310
  2. ONE A DAY VITAMIN [Concomitant]
  3. DIAVAN [Concomitant]
  4. TRAMADOL HCL [Concomitant]
  5. ALBUTEROL [Concomitant]
  6. PROVENTIL [Concomitant]

REACTIONS (3)
  - DYSPNOEA [None]
  - FEELING JITTERY [None]
  - DEREALISATION [None]
